FAERS Safety Report 11758037 (Version 1)
Quarter: 2015Q4

REPORT INFORMATION
  Report Type: Spontaneous
  Country: US (occurrence: US)
  Receive Date: 20151120
  Receipt Date: 20151120
  Transmission Date: 20160304
  Serious: Yes (Other)
  Sender: FDA-Public Use
  Company Number: US-LUPIN PHARMACEUTICALS INC.-2015-03716

PATIENT
  Age: 73 Year
  Sex: Female

DRUGS (1)
  1. CEFTRIAXONE 1G POWDER FOR SOLUTION FOR INJECTION/INFUSION [Suspect]
     Active Substance: CEFTRIAXONE SODIUM
     Indication: PRODUCT USED FOR UNKNOWN INDICATION
     Dates: start: 20151030

REACTIONS (3)
  - Flushing [Unknown]
  - Swelling face [Unknown]
  - Urticaria [Unknown]

NARRATIVE: CASE EVENT DATE: 20151030
